FAERS Safety Report 24084656 (Version 3)
Quarter: 2024Q3

REPORT INFORMATION
  Report Type: Spontaneous
  Country: JP (occurrence: JP)
  Receive Date: 20240712
  Receipt Date: 20240724
  Transmission Date: 20241017
  Serious: Yes (Hospitalization, Other)
  Sender: PFIZER
  Company Number: JP-MLMSERVICE-20240701-PI118343-00214-1

PATIENT
  Age: 65 Year
  Sex: Female
  Weight: 58.3 kg

DRUGS (3)
  1. MEROPENEM [Interacting]
     Active Substance: MEROPENEM
     Indication: Meningitis bacterial
     Dosage: 2 G, 3X/DAY (2.0 G EVERY 8 H OR 6.0 G/DAY)
  2. VANCOMYCIN [Interacting]
     Active Substance: VANCOMYCIN
     Indication: Meningitis bacterial
     Dosage: 1 G, 2X/DAY
  3. OLMESARTAN [Concomitant]
     Active Substance: OLMESARTAN
     Dosage: 20 MG, DAILY

REACTIONS (3)
  - Drug interaction [Recovered/Resolved]
  - Drug level increased [Recovered/Resolved]
  - Acute kidney injury [Recovered/Resolved]
